FAERS Safety Report 12506199 (Version 2)
Quarter: 2016Q3

REPORT INFORMATION
  Report Type: Spontaneous
  Country: US (occurrence: US)
  Receive Date: 20160628
  Receipt Date: 20160722
  Transmission Date: 20161109
  Serious: Yes (Other)
  Sender: FDA-Public Use
  Company Number: US-009507513-1606USA012027

PATIENT
  Age: 13 Year
  Sex: Female

DRUGS (3)
  1. METHYLPREDNISOLONE. [Suspect]
     Active Substance: METHYLPREDNISOLONE
     Indication: DERMOID CYST
  2. DEXAMETHASONE. [Suspect]
     Active Substance: DEXAMETHASONE
     Indication: DERMOID CYST
     Route: 048
  3. DIHYDROERGOTAMINE TARTRATE [Concomitant]
     Indication: DERMOID CYST
     Route: 042

REACTIONS (4)
  - Dizziness [Unknown]
  - Vomiting [Unknown]
  - Headache [Unknown]
  - Ocular discomfort [Unknown]
